FAERS Safety Report 10701263 (Version 2)
Quarter: 2015Q1

REPORT INFORMATION
  Report Type: Spontaneous
  Country: GB (occurrence: GB)
  Receive Date: 20150109
  Receipt Date: 20150115
  Transmission Date: 20150721
  Serious: Yes (Life-Threatening, Hospitalization, Disabling, Other)
  Sender: FDA-Public Use
  Company Number: GB-ASTELLAS-2015US000751

PATIENT
  Age: 80 Year
  Sex: Male

DRUGS (1)
  1. ENZALUTAMIDE [Suspect]
     Active Substance: ENZALUTAMIDE
     Indication: HORMONE-REFRACTORY PROSTATE CANCER
     Dosage: 160 UNK, ONCE DAILY
     Route: 048
     Dates: start: 20140429

REACTIONS (2)
  - Tracheal inflammation [Not Recovered/Not Resolved]
  - Tracheal obstruction [Not Recovered/Not Resolved]

NARRATIVE: CASE EVENT DATE: 20120101
